FAERS Safety Report 4357504-X (Version None)
Quarter: 2004Q2

REPORT INFORMATION
  Report Type: 
  Country: None (occurrence: None)
  Receive Date: 20040510
  Receipt Date: 20040428
  Transmission Date: 20050107
  Serious: Yes (Other)
  Sender: FDA-Public Use
  Company Number: GB-JNJFOC-20040406129

PATIENT
  Age: 12 Year
  Sex: Male
  Weight: 43.7 kg

DRUGS (1)
  1. CONCERTA [Suspect]
     Indication: ATTENTION DEFICIT/HYPERACTIVITY DISORDER
     Dosage: 54 MG, IN 1 DAY, ORAL
     Route: 048
     Dates: start: 20031115, end: 20031206

REACTIONS (2)
  - AGGRESSION [None]
  - PSYCHOTIC DISORDER [None]
